FAERS Safety Report 4956311-4 (Version None)
Quarter: 2006Q1

REPORT INFORMATION
  Report Type: 
  Country: None (occurrence: None)
  Receive Date: 20060323
  Receipt Date: 20060313
  Transmission Date: 20060701
  Serious: Yes (Hospitalization, Other)
  Sender: FDA-Public Use
  Company Number: 2006035329

PATIENT
  Age: 58 Year
  Sex: Female

DRUGS (7)
  1. LIPITOR [Suspect]
     Indication: LOW DENSITY LIPOPROTEIN INCREASED
     Dosage: 20 MG (20 MG, 1 IN 1 D), ORAL
     Route: 048
     Dates: start: 20030101
  2. EZETROL (EZETIMIBE) [Concomitant]
  3. VALSARTAN [Concomitant]
  4. ESTRADIOL [Concomitant]
  5. ASPIRIN [Concomitant]
  6. ALPRAZOLAM [Concomitant]
  7. MELOXICAM (MELOXICAM) [Concomitant]

REACTIONS (4)
  - CHONDROPATHY [None]
  - DRUG INEFFECTIVE [None]
  - INFLAMMATION [None]
  - PAIN [None]
